FAERS Safety Report 16006092 (Version 1)
Quarter: 2019Q1

REPORT INFORMATION
  Report Type: Spontaneous
  Country: HK (occurrence: HK)
  Receive Date: 20190226
  Receipt Date: 20190226
  Transmission Date: 20190418
  Serious: Yes (Hospitalization)
  Sender: FDA-Public Use
  Company Number: HK-SIGMAPHARM LABORATORIES, LLC-2019SIG00024

PATIENT
  Age: 50 Year
  Sex: Male

DRUGS (1)
  1. DISULFIRAM. [Suspect]
     Active Substance: DISULFIRAM
     Indication: ALCOHOLISM
     Dosage: 400 MG EVERY MONDAY AND WEDNESDAY AND 600 MG EVERY FRIDAY
     Route: 065

REACTIONS (1)
  - Encephalopathy [Recovering/Resolving]
